FAERS Safety Report 11069326 (Version 2)
Quarter: 2015Q3

REPORT INFORMATION
  Report Type: Spontaneous
  Country: US (occurrence: US)
  Receive Date: 20150427
  Receipt Date: 20150702
  Transmission Date: 20151125
  Serious: Yes (Hospitalization, Other)
  Sender: FDA-Public Use
  Company Number: US-JNJFOC-20150417238

PATIENT
  Age: 27 Year
  Sex: Female
  Weight: 85 kg

DRUGS (4)
  1. TYLENOL PM EXTRA STRENGTH [Suspect]
     Active Substance: ACETAMINOPHEN\DIPHENHYDRAMINE HYDROCHLORIDE
     Indication: VOMITING
     Dosage: 7-10 TABLETS ON 14-MAY-2011 ??10-12 TABLETS ON 15-MAY-2011
     Route: 048
     Dates: start: 2010, end: 201105
  2. TYLENOL PM EXTRA STRENGTH [Suspect]
     Active Substance: ACETAMINOPHEN\DIPHENHYDRAMINE HYDROCHLORIDE
     Indication: PAIN
     Dosage: 7-10 TABLETS ON 14-MAY-2011 ??10-12 TABLETS ON 15-MAY-2011
     Route: 048
     Dates: start: 2010, end: 201105
  3. TYLENOL PM EXTRA STRENGTH [Suspect]
     Active Substance: ACETAMINOPHEN\DIPHENHYDRAMINE HYDROCHLORIDE
     Indication: NAUSEA
     Dosage: 7-10 TABLETS ON 14-MAY-2011 ??10-12 TABLETS ON 15-MAY-2011
     Route: 048
     Dates: start: 2010, end: 201105
  4. TYLENOL PM EXTRA STRENGTH [Suspect]
     Active Substance: ACETAMINOPHEN\DIPHENHYDRAMINE HYDROCHLORIDE
     Indication: INSOMNIA
     Dosage: 7-10 TABLETS ON 14-MAY-2011 ??10-12 TABLETS ON 15-MAY-2011
     Route: 048
     Dates: start: 2010, end: 201105

REACTIONS (5)
  - Acute kidney injury [Recovering/Resolving]
  - Sinus tachycardia [Unknown]
  - Acute hepatic failure [Recovering/Resolving]
  - Accidental overdose [Unknown]
  - Coagulopathy [Recovering/Resolving]

NARRATIVE: CASE EVENT DATE: 201105
